FAERS Safety Report 6678847-0 (Version None)
Quarter: 2010Q2

REPORT INFORMATION
  Report Type: 
  Country: None (occurrence: None)
  Receive Date: 20100412
  Receipt Date: 20100412
  Transmission Date: 20101027
  Serious: Yes (Death)
  Sender: FDA-Public Use
  Company Number: None

PATIENT
  Age: 54 Year
  Sex: Male
  Weight: 81.6475 kg

DRUGS (1)
  1. LEXAPRO [Suspect]
     Indication: DEPRESSION
     Dosage: 10 MG DAILY OPHTHALMIC
     Route: 047
     Dates: start: 20100310, end: 20100324

REACTIONS (2)
  - COMPLETED SUICIDE [None]
  - INTENTIONAL SELF-INJURY [None]
